FAERS Safety Report 13371300 (Version 1)
Quarter: 2017Q1

REPORT INFORMATION
  Report Type: Spontaneous
  Country: US (occurrence: US)
  Receive Date: 20170324
  Receipt Date: 20170324
  Transmission Date: 20170429
  Serious: Yes (Other)
  Sender: FDA-Public Use
  Company Number: US-ELI_LILLY_AND_COMPANY-US201608005377

PATIENT
  Sex: Male
  Weight: 94.33 kg

DRUGS (2)
  1. CYMBALTA [Suspect]
     Active Substance: DULOXETINE HYDROCHLORIDE
     Indication: PRODUCT USED FOR UNKNOWN INDICATION
     Dosage: 2 DF, QD
     Route: 065
     Dates: start: 20150318
  2. ATORVASTATIN [Concomitant]
     Active Substance: ATORVASTATIN
     Indication: BLOOD CHOLESTEROL
     Dosage: 40 MG, EACH EVENING
     Route: 048
     Dates: start: 20151210

REACTIONS (24)
  - Drug withdrawal syndrome [Unknown]
  - Insomnia [Unknown]
  - Depressive symptom [Unknown]
  - Anhedonia [Unknown]
  - Vision blurred [Unknown]
  - Confusional state [Unknown]
  - Anxiety [Unknown]
  - Hyperhidrosis [Unknown]
  - Affect lability [Unknown]
  - Headache [Recovering/Resolving]
  - Amnesia [Unknown]
  - Sensory disturbance [Unknown]
  - Paraesthesia [Unknown]
  - Irritability [Unknown]
  - Suicidal ideation [Unknown]
  - Libido decreased [Unknown]
  - Vertigo [Unknown]
  - Nausea [Unknown]
  - Fatigue [Unknown]
  - Lethargy [Unknown]
  - Dysphoria [Unknown]
  - Hypomania [Unknown]
  - Agitation [Unknown]
  - Dizziness [Unknown]
